FAERS Safety Report 5274568-X (Version None)
Quarter: 2007Q1

REPORT INFORMATION
  Report Type: 
  Country: None (occurrence: None)
  Receive Date: 20070323
  Receipt Date: 20070313
  Transmission Date: 20070707
  Serious: Yes (Other)
  Sender: FDA-Public Use
  Company Number: CA-PFIZER INC-2007020709

PATIENT
  Sex: Female

DRUGS (2)
  1. SUTENT [Suspect]
     Route: 048
  2. IRON [Interacting]
     Indication: MINERAL SUPPLEMENTATION

REACTIONS (4)
  - DRUG INTERACTION [None]
  - FATIGUE [None]
  - HAEMOGLOBIN DECREASED [None]
  - SLUGGISHNESS [None]
